FAERS Safety Report 20975190 (Version 1)
Quarter: 2022Q2

REPORT INFORMATION
  Report Type: Spontaneous
  Country: KR (occurrence: KR)
  Receive Date: 20220617
  Receipt Date: 20220617
  Transmission Date: 20220720
  Serious: Yes (Hospitalization, Other)
  Sender: FDA-Public Use
  Company Number: KR-SUN PHARMACEUTICAL INDUSTRIES LTD-2022RR-341249

PATIENT
  Age: 15 Year
  Sex: Female

DRUGS (9)
  1. FLUOXETINE [Suspect]
     Active Substance: FLUOXETINE HYDROCHLORIDE
     Indication: Depression
     Dosage: 20 MILLIGRAM, DAILY
     Route: 065
  2. FLUOXETINE [Suspect]
     Active Substance: FLUOXETINE HYDROCHLORIDE
     Dosage: 60 MILLIGRAM, DAILY
     Route: 065
  3. ARIPIPRAZOLE [Suspect]
     Active Substance: ARIPIPRAZOLE
     Indication: Depression
     Dosage: 10 MILLIGRAM, DAILY
     Route: 065
  4. ESCITALOPRAM [Suspect]
     Active Substance: ESCITALOPRAM OXALATE
     Indication: Depression
     Dosage: 20 MILLIGRAM, DAILY
     Route: 065
  5. LITHIUM [Suspect]
     Active Substance: LITHIUM
     Indication: Affect lability
     Dosage: 900 MILLIGRAM, DAILY
     Route: 065
  6. LITHIUM [Suspect]
     Active Substance: LITHIUM
     Indication: Intentional self-injury
  7. LITHIUM [Suspect]
     Active Substance: LITHIUM
     Indication: Suicidal ideation
  8. CLOZAPINE [Suspect]
     Active Substance: CLOZAPINE
     Indication: Depression
     Dosage: 12.5 MILLIGRAM, DAILY
     Route: 065
  9. CLOZAPINE [Suspect]
     Active Substance: CLOZAPINE
     Dosage: 25 MILLIGRAM, DAILY
     Route: 065

REACTIONS (2)
  - Drug ineffective [Unknown]
  - Insomnia [Unknown]
